FAERS Safety Report 24207349 (Version 1)
Quarter: 2024Q3

REPORT INFORMATION
  Report Type: Spontaneous
  Country: US (occurrence: US)
  Receive Date: 20240813
  Receipt Date: 20240813
  Transmission Date: 20241017
  Serious: Yes (Other)
  Sender: JOHNSON AND JOHNSON
  Company Number: US-JNJFOC-20240821241

PATIENT
  Sex: Male

DRUGS (1)
  1. XARELTO [Suspect]
     Active Substance: RIVAROXABAN
     Indication: Product used for unknown indication
     Dosage: GTIN NUMBER : 00350458579307?SERIAL NUMBER : 100045535827?PRESCRIPTION NUMBER : 1258889
     Route: 048

REACTIONS (2)
  - Thrombosis [Unknown]
  - Product dose omission issue [Unknown]
